FAERS Safety Report 9810536 (Version 2)
Quarter: 2015Q3

REPORT INFORMATION
  Report Type: Spontaneous
  Country: US (occurrence: US)
  Receive Date: 20140110
  Receipt Date: 20150719
  Transmission Date: 20151125
  Serious: Yes (Other)
  Sender: FDA-Public Use
  Company Number: US-SANOFI-AVENTIS-2013SA082543

PATIENT
  Sex: Male

DRUGS (3)
  1. ASPIRIN. [Concomitant]
     Active Substance: ASPIRIN
     Dates: end: 201502
  2. PLAVIX [Suspect]
     Active Substance: CLOPIDOGREL BISULFATE
     Indication: STENT PLACEMENT
     Route: 065
  3. COUMADIN [Concomitant]
     Active Substance: WARFARIN SODIUM

REACTIONS (3)
  - Barrett^s oesophagus [Unknown]
  - Haemorrhage [Unknown]
  - Gastrointestinal haemorrhage [Unknown]
